FAERS Safety Report 7969095-2 (Version None)
Quarter: 2011Q4

REPORT INFORMATION
  Report Type: 
  Country: None (occurrence: None)
  Receive Date: 20111209
  Receipt Date: 20111204
  Transmission Date: 20120403
  Serious: Yes (Other)
  Sender: FDA-Public Use
  Company Number: DE-ROCHE-1019801

PATIENT
  Sex: Female

DRUGS (1)
  1. XELODA [Suspect]
     Indication: SMALL INTESTINE CARCINOMA
     Route: 065

REACTIONS (3)
  - DEPRESSION [None]
  - BURNING SENSATION [None]
  - DISTURBANCE IN ATTENTION [None]
